FAERS Safety Report 20419648 (Version 1)
Quarter: 2022Q1

REPORT INFORMATION
  Report Type: Spontaneous
  Country: US (occurrence: US)
  Receive Date: 20220203
  Receipt Date: 20220203
  Transmission Date: 20220423
  Serious: No
  Sender: FDA-Public Use
  Company Number: US-HETERO-HET2022US00234

PATIENT

DRUGS (1)
  1. RITONAVIR [Suspect]
     Active Substance: RITONAVIR
     Indication: COVID-19
     Dosage: 100 MG, BID
     Route: 065
     Dates: start: 20220122

REACTIONS (7)
  - Epigastric discomfort [Not Recovered/Not Resolved]
  - Balance disorder [Recovering/Resolving]
  - Feeling jittery [Unknown]
  - Anxiety [Unknown]
  - Tremor [Unknown]
  - Dizziness [Recovering/Resolving]
  - Dysgeusia [Not Recovered/Not Resolved]
